FAERS Safety Report 9389963 (Version 7)
Quarter: 2015Q1

REPORT INFORMATION
  Report Type: Spontaneous
  Country: US (occurrence: US)
  Receive Date: 20130708
  Receipt Date: 20150319
  Transmission Date: 20150721
  Serious: Yes (Other)
  Sender: FDA-Public Use
  Company Number: US-AMGEN-USASP2013044475

PATIENT
  Age: 39 Year
  Sex: Female
  Weight: 64.85 kg

DRUGS (5)
  1. PREDNISONE. [Concomitant]
     Active Substance: PREDNISONE
     Dosage: 1-2 MG, DAILY
     Route: 048
     Dates: start: 20130626, end: 20130815
  2. LEVOTHYROXIN [Concomitant]
     Active Substance: LEVOTHYROXINE
     Dosage: 150 MUG, QD
     Route: 048
     Dates: start: 20130501
  3. FOLIC ACID. [Concomitant]
     Active Substance: FOLIC ACID
     Dosage: UNK DAILY
     Dates: start: 20130501, end: 20140201
  4. ENBREL [Suspect]
     Active Substance: ETANERCEPT
     Indication: RHEUMATOID ARTHRITIS
     Dosage: 50 MG, QWK
     Route: 065
     Dates: start: 20110129, end: 20130429
  5. MULTIVITAMIN                       /00097801/ [Concomitant]
     Active Substance: VITAMINS
     Dosage: UNK, QD
     Dates: start: 20130501, end: 20140201

REACTIONS (5)
  - Premature delivery [Unknown]
  - Malaise [Unknown]
  - Multiple epiphyseal dysplasia [Unknown]
  - Premature rupture of membranes [Unknown]
  - Rheumatoid arthritis [Unknown]

NARRATIVE: CASE EVENT DATE: 2012
